FAERS Safety Report 6202109-9 (Version None)
Quarter: 2009Q2

REPORT INFORMATION
  Report Type: 
  Country: None (occurrence: None)
  Receive Date: 20090526
  Receipt Date: 20090514
  Transmission Date: 20091009
  Serious: Yes (Other)
  Sender: FDA-Public Use
  Company Number: US-ASTRAZENECA-2009AC01472

PATIENT
  Age: 52 Year
  Sex: Male

DRUGS (1)
  1. GOSERELIN [Suspect]
     Indication: CANCER HORMONAL THERAPY
     Dates: start: 19990101

REACTIONS (7)
  - BLOOD TESTOSTERONE DECREASED [None]
  - DEPRESSION [None]
  - ERECTILE DYSFUNCTION [None]
  - FATIGUE [None]
  - HOT FLUSH [None]
  - LOSS OF LIBIDO [None]
  - SUICIDAL IDEATION [None]
